FAERS Safety Report 6120777-7 (Version None)
Quarter: 2009Q1

REPORT INFORMATION
  Report Type: 
  Country: None (occurrence: None)
  Receive Date: 20090317
  Receipt Date: 20080204
  Transmission Date: 20090719
  Serious: Yes (Hospitalization)
  Sender: FDA-Public Use
  Company Number: ES-AVENTIS-200911209EU

PATIENT
  Age: 86 Year
  Sex: Male

DRUGS (6)
  1. FUROSEMIDE [Suspect]
     Dosage: DOSE: UNK
     Dates: start: 20060101
  2. IBUPROFEN [Suspect]
     Dates: start: 20071122, end: 20071129
  3. BENESTAN [Suspect]
     Dosage: DOSE: UNK
     Route: 048
     Dates: start: 20060101
  4. HIBOR [Suspect]
     Indication: VENOUS INSUFFICIENCY
     Dates: start: 20071116, end: 20071126
  5. SPIRIVA [Suspect]
     Dosage: DOSE: UNK
     Dates: start: 20060101
  6. DAFLON                             /00426001/ [Suspect]
     Indication: VENOUS INSUFFICIENCY
     Route: 048
     Dates: start: 20071122, end: 20071129

REACTIONS (2)
  - DRUG INTERACTION [None]
  - PURPURA [None]
